FAERS Safety Report 17440412 (Version 1)
Quarter: 2020Q1

REPORT INFORMATION
  Report Type: Other
  Country: CA (occurrence: CA)
  Receive Date: 20200220
  Receipt Date: 20200220
  Transmission Date: 20200409
  Serious: Yes (Death, Hospitalization, Other)
  Sender: FDA-Public Use
  Company Number: CA-APOTEX-2020AP007765

PATIENT
  Age: 49 Year
  Sex: Male

DRUGS (5)
  1. ALLOPURINOL. [Concomitant]
     Active Substance: ALLOPURINOL
     Indication: GOUT
     Dosage: UNK
     Route: 065
  2. LISINOPRIL. [Suspect]
     Active Substance: LISINOPRIL
     Indication: HYPERTENSION
     Dosage: UNK
     Route: 065
  3. TOLVAPTAN [Suspect]
     Active Substance: TOLVAPTAN
     Dosage: 15 MG, QD
     Route: 048
  4. TOLVAPTAN [Suspect]
     Active Substance: TOLVAPTAN
     Indication: CONGENITAL CYSTIC KIDNEY DISEASE
     Dosage: 45 MG, QD
     Route: 048
  5. WARFARIN [Concomitant]
     Active Substance: WARFARIN
     Indication: DEEP VEIN THROMBOSIS
     Dosage: UNK
     Route: 065

REACTIONS (13)
  - Endotracheal intubation [Fatal]
  - Alanine aminotransferase increased [Fatal]
  - Asthenia [Fatal]
  - Pneumonia [Fatal]
  - Muscle atrophy [Fatal]
  - Therapy cessation [Fatal]
  - Unevaluable event [Fatal]
  - Angioedema [Fatal]
  - Hypersensitivity [Fatal]
  - Myocardial infarction [Fatal]
  - Intensive care [Fatal]
  - Amnesia [Fatal]
  - Aspartate aminotransferase increased [Fatal]
